FAERS Safety Report 5221424-9 (Version None)
Quarter: 2007Q1

REPORT INFORMATION
  Report Type: 
  Country: None (occurrence: None)
  Receive Date: 20070126
  Receipt Date: 20070116
  Transmission Date: 20070707
  Serious: Yes (Other)
  Sender: FDA-Public Use
  Company Number: US-PFIZER INC-2007004691

PATIENT
  Sex: Female
  Weight: 83.9 kg

DRUGS (3)
  1. DEPO-PROVERA [Suspect]
     Indication: CONTRACEPTION
     Route: 030
     Dates: start: 19951001, end: 19951001
  2. DEPO-PROVERA [Suspect]
     Route: 030
     Dates: start: 20060723, end: 20060723
  3. THYROID TAB [Concomitant]
     Indication: HYPOTHYROIDISM

REACTIONS (13)
  - ABDOMINAL PAIN LOWER [None]
  - AMENORRHOEA [None]
  - ARTHRALGIA [None]
  - BACK PAIN [None]
  - BONE DENSITY DECREASED [None]
  - BREAST PAIN [None]
  - CHEST PAIN [None]
  - HEADACHE [None]
  - OVARIAN CYST [None]
  - PAIN [None]
  - PARAESTHESIA [None]
  - PELVIC PAIN [None]
  - WEIGHT INCREASED [None]
